FAERS Safety Report 8912067 (Version 2)
Quarter: 2013Q1

REPORT INFORMATION
  Report Type: Spontaneous
  Country: US (occurrence: US)
  Receive Date: 20121116
  Receipt Date: 20130102
  Transmission Date: 20140127
  Serious: No
  Sender: FDA-Public Use
  Company Number: US-PFIZER INC-2012285393

PATIENT
  Age: 36 Year
  Sex: Male
  Weight: 69.8 kg

DRUGS (1)
  1. ADVIL [Suspect]
     Indication: ARTHRITIS
     Dosage: 400 MG, AS NEEDED
     Route: 048

REACTIONS (3)
  - Poor quality drug administered [Unknown]
  - Foreign body [Unknown]
  - Tablet physical issue [Unknown]
